FAERS Safety Report 16232550 (Version 1)
Quarter: 2019Q2

REPORT INFORMATION
  Report Type: Report from Study
  Country: ES (occurrence: ES)
  Receive Date: 20190424
  Receipt Date: 20190424
  Transmission Date: 20190711
  Serious: Yes (Hospitalization)
  Sender: FDA-Public Use
  Company Number: ES-TEVA-2019-ES-1039987

PATIENT
  Age: 68 Year
  Sex: Male

DRUGS (6)
  1. CELLCEPT [Interacting]
     Active Substance: MYCOPHENOLATE MOFETIL\MYCOPHENOLATE MOFETIL HYDROCHLORIDE
     Indication: LIVER TRANSPLANT
     Dosage: 1 GRAM DAILY;
     Route: 048
     Dates: start: 201809, end: 20181206
  2. PREDNISONA (886A) [Suspect]
     Active Substance: PREDNISONE
     Indication: LIVER TRANSPLANT
     Dosage: 15 MILLIGRAM DAILY;
     Route: 048
     Dates: start: 201809, end: 20181205
  3. LEDERFOLIN 15 MG COMPRIMIDOS, 10 COMPRIMIDOS [Concomitant]
     Active Substance: LEUCOVORIN CALCIUM
     Indication: BLOOD PHOSPHORUS DECREASED
     Dosage: 15 MILLIGRAM DAILY;
     Route: 048
     Dates: start: 201809
  4. CARVEDILOL (2431A) [Concomitant]
     Active Substance: CARVEDILOL
     Dosage: 12.5 MILLIGRAM DAILY;
     Route: 048
  5. ADVAGRAF 1 MG 30 CAPSULAS DURAS DE LIBERACION PROLONGADA, 30 C?PSULAS [Interacting]
     Active Substance: TACROLIMUS
     Indication: LIVER TRANSPLANT
     Dosage: 2.5 MILLIGRAM DAILY;
     Route: 048
     Dates: start: 201809
  6. SEPTRIN FORTE 160 MG/800 MG COMPRIMIDOS, 20 COMPRIMIDOS [Concomitant]
     Active Substance: SULFAMETHOXAZOLE\TRIMETHOPRIM
     Indication: PROPHYLAXIS
     Dosage: 3 DOSAGE FORMS DAILY;
     Route: 048
     Dates: start: 201809, end: 20181205

REACTIONS (2)
  - Cytomegalovirus infection [Recovered/Resolved]
  - Drug interaction [Unknown]

NARRATIVE: CASE EVENT DATE: 201812
